FAERS Safety Report 21760131 (Version 1)
Quarter: 2022Q4

REPORT INFORMATION
  Report Type: Spontaneous
  Country: CA (occurrence: CA)
  Receive Date: 20221221
  Receipt Date: 20221221
  Transmission Date: 20230113
  Serious: Yes (Other)
  Sender: FDA-Public Use
  Company Number: CA-PFIZER INC-202201087924

PATIENT
  Age: 62 Year
  Sex: Female

DRUGS (2)
  1. ABRILADA [Suspect]
     Active Substance: ADALIMUMAB-AFZB
     Indication: Crohn^s disease
     Dosage: 40 MG EVERY 2 WEEKS
     Route: 058
     Dates: start: 20220603
  2. ABRILADA [Suspect]
     Active Substance: ADALIMUMAB-AFZB
     Dosage: 40 MG EVERY 2 WEEKS
     Route: 058
     Dates: start: 20221014

REACTIONS (8)
  - Gastrointestinal oedema [Unknown]
  - Night sweats [Unknown]
  - Fatigue [Unknown]
  - Malaise [Unknown]
  - Gastrointestinal wall thickening [Not Recovered/Not Resolved]
  - Breast mass [Unknown]
  - Gastrointestinal mucosa hyperaemia [Unknown]
  - Large intestine polyp [Not Recovered/Not Resolved]

NARRATIVE: CASE EVENT DATE: 20220601
